FAERS Safety Report 9693564 (Version 2)
Quarter: 2013Q4

REPORT INFORMATION
  Report Type: Report from Study
  Country: FR (occurrence: FR)
  Receive Date: 20131118
  Receipt Date: 20131125
  Transmission Date: 20140711
  Serious: Yes (Hospitalization, Disabling)
  Sender: FDA-Public Use
  Company Number: FR-GLAXOSMITHKLINE-Z0021613A

PATIENT
  Age: 72 Year
  Sex: Female
  Weight: 62 kg

DRUGS (2)
  1. DABRAFENIB [Suspect]
     Indication: MALIGNANT MELANOMA
     Dosage: 150MG PER DAY
     Route: 048
     Dates: start: 20131002
  2. TRAMETINIB [Suspect]
     Indication: MALIGNANT MELANOMA
     Dosage: 2MG PER DAY
     Route: 048
     Dates: start: 20131002

REACTIONS (2)
  - Decreased appetite [Recovered/Resolved]
  - Vomiting [Recovered/Resolved]
